FAERS Safety Report 8405080-4 (Version None)
Quarter: 2012Q2

REPORT INFORMATION
  Report Type: 
  Country: None (occurrence: None)
  Receive Date: 20120601
  Receipt Date: 20120517
  Transmission Date: 20120825
  Serious: Yes (Other)
  Sender: FDA-Public Use
  Company Number: CHPA2012US011244

PATIENT
  Age: 61 Year
  Sex: Female

DRUGS (2)
  1. BENEFIBER PLUS CALCIUM WITH WHEAT DEXTRIN [Suspect]
     Indication: GASTROINTESTINAL DISORDER
     Dosage: 2 HEAPING TSP, BID
     Route: 048
     Dates: end: 20120501
  2. MIRALAX [Concomitant]
     Dosage: UNK, UNK

REACTIONS (4)
  - MIGRAINE [None]
  - CONCOMITANT DISEASE AGGRAVATED [None]
  - OFF LABEL USE [None]
  - OVERDOSE [None]
